FAERS Safety Report 8512543-X (Version None)
Quarter: 2012Q3

REPORT INFORMATION
  Report Type: 
  Country: None (occurrence: None)
  Receive Date: 20120716
  Receipt Date: 20120705
  Transmission Date: 20120928
  Serious: Yes (Other)
  Sender: FDA-Public Use
  Company Number: GB-ROCHE-1070074

PATIENT
  Sex: Female

DRUGS (3)
  1. AVASTIN [Suspect]
     Indication: DIABETIC RETINAL OEDEMA
     Dosage: 1.25 MG/0.05 ML
     Route: 050
     Dates: start: 20120203
  2. LEVOFLOXACIN [Concomitant]
  3. INSULIN [Concomitant]

REACTIONS (3)
  - UVEITIS [None]
  - VITREOUS FLOATERS [None]
  - IRITIS [None]
